FAERS Safety Report 4780964-7 (Version None)
Quarter: 2005Q3

REPORT INFORMATION
  Report Type: 
  Country: None (occurrence: None)
  Receive Date: 20050926
  Receipt Date: 20050926
  Transmission Date: 20060218
  Serious: Yes (Hospitalization, Other)
  Sender: FDA-Public Use
  Company Number: None

PATIENT
  Sex: Male
  Weight: 120.2032 kg

DRUGS (2)
  1. BENAZEPRIL HCT 20/25MG OPD. [Suspect]
     Indication: HYPERTENSION
     Dosage: OPD ORAL
     Route: 048
     Dates: start: 20020101, end: 20050727
  2. DYNACIRC [Suspect]
     Indication: HYPERTENSION
     Dosage: OPD ORAL
     Route: 048
     Dates: start: 20030327, end: 20050727

REACTIONS (7)
  - ERYTHEMA [None]
  - HAIR DISORDER [None]
  - IMPAIRED HEALING [None]
  - INFECTION [None]
  - OPEN WOUND [None]
  - SCROTAL DISORDER [None]
  - WOUND COMPLICATION [None]
